FAERS Safety Report 24076747 (Version 4)
Quarter: 2025Q1

REPORT INFORMATION
  Report Type: Spontaneous
  Country: US (occurrence: US)
  Receive Date: 20240711
  Receipt Date: 20250130
  Transmission Date: 20250408
  Serious: No
  Sender: LEO PHARM
  Company Number: US-LEO Pharma-371859

PATIENT
  Age: 38 Year
  Sex: Male

DRUGS (1)
  1. ADBRY [Suspect]
     Active Substance: TRALOKINUMAB-LDRM
     Indication: Dermatitis atopic
     Route: 058
     Dates: start: 20240430, end: 20240727

REACTIONS (3)
  - Drug ineffective [Unknown]
  - Eczema [Unknown]
  - Dermatitis atopic [Unknown]
